FAERS Safety Report 12919030 (Version 1)
Quarter: 2016Q4

REPORT INFORMATION
  Report Type: Spontaneous
  Country: IR (occurrence: IR)
  Receive Date: 20161108
  Receipt Date: 20161108
  Transmission Date: 20170207
  Serious: Yes (Other)
  Sender: FDA-Public Use
  Company Number: IR-PAR PHARMACEUTICAL COMPANIES-2016SCPR016079

PATIENT

DRUGS (2)
  1. MISOPROSTOL. [Concomitant]
     Active Substance: MISOPROSTOL
     Indication: ABORTION INDUCED
     Dosage: 200 MCG, EVERY 6 HOURS
     Route: 067
  2. PITOCIN [Suspect]
     Active Substance: OXYTOCIN
     Indication: ABORTION INDUCED
     Dosage: 40 UNITS IN A LITER OF NORMAL SALINE DURING ONE HOUR, SINGLE
     Route: 042

REACTIONS (1)
  - Retained placenta or membranes [Unknown]
